FAERS Safety Report 19104733 (Version 2)
Quarter: 2021Q3

REPORT INFORMATION
  Report Type: Spontaneous
  Country: JP (occurrence: JP)
  Receive Date: 20210407
  Receipt Date: 20210712
  Transmission Date: 20211014
  Serious: Yes (Hospitalization, Other)
  Sender: FDA-Public Use
  Company Number: JP-BRISTOL-MYERS SQUIBB COMPANY-BMS-2021-033131

PATIENT
  Age: 72 Year
  Sex: Male
  Weight: 55.1 kg

DRUGS (5)
  1. NU?LOTAN [Concomitant]
     Active Substance: LOSARTAN POTASSIUM
     Indication: HYPERTENSION
     Dosage: 50 MILLIGRAM, QD
     Route: 048
  2. CAMSHIA [Concomitant]
     Active Substance: AMLODIPINE BESYLATE\CANDESARTAN CILEXETIL
     Indication: HYPERTENSION
     Dosage: UNK UNK, QD
     Route: 048
  3. CYMBALTA [Concomitant]
     Active Substance: DULOXETINE HYDROCHLORIDE
     Indication: PERIPHERAL SENSORY NEUROPATHY
     Dosage: 20 MILLIGRAM, QD
     Route: 048
     Dates: start: 20200318
  4. OPDIVO [Suspect]
     Active Substance: NIVOLUMAB
     Indication: GASTRIC CANCER
     Dosage: 240 MILLIGRAM
     Route: 041
     Dates: start: 20200805
  5. TARLIGE [Concomitant]
     Active Substance: MIROGABALIN BESYLATE
     Indication: PERIPHERAL SENSORY NEUROPATHY
     Dosage: 2.5 MILLIGRAM, Q12H
     Route: 048
     Dates: start: 20200318

REACTIONS (7)
  - Cortisol decreased [Unknown]
  - Thyroxine free decreased [Unknown]
  - Blood thyroid stimulating hormone increased [Unknown]
  - Hypopituitarism [Recovering/Resolving]
  - Blood corticotrophin decreased [Unknown]
  - Secondary adrenocortical insufficiency [Unknown]
  - Hypothalamo-pituitary disorder [Unknown]

NARRATIVE: CASE EVENT DATE: 20210317
